FAERS Safety Report 4687475-8 (Version None)
Quarter: 2005Q2

REPORT INFORMATION
  Report Type: 
  Country: None (occurrence: None)
  Receive Date: 20050609
  Receipt Date: 20050609
  Transmission Date: 20051028
  Serious: Yes (Other)
  Sender: FDA-Public Use
  Company Number: None

PATIENT
  Sex: Male
  Weight: 94.5 kg

DRUGS (2)
  1. CYTARABINE [Suspect]
     Indication: ACUTE MYELOID LEUKAEMIA
     Dosage: 100 MG/M2/DAY BY CIV ON DAYS 1-7
     Route: 042
     Dates: start: 20050527
  2. DAUNORUBICIN [Suspect]
     Indication: ACUTE MYELOID LEUKAEMIA
     Dosage: 60 MG/M2/DAY BY IVP ON DAYS 1-3
     Route: 042
     Dates: start: 20050527

REACTIONS (11)
  - ANAEMIA [None]
  - ANGINA PECTORIS [None]
  - ATRIAL FIBRILLATION [None]
  - CARDIAC FLUTTER [None]
  - CHEST PAIN [None]
  - CORONARY ARTERY OCCLUSION [None]
  - DISEASE RECURRENCE [None]
  - HYPERHIDROSIS [None]
  - SHOULDER PAIN [None]
  - SINUS TACHYCARDIA [None]
  - TROPONIN INCREASED [None]
